FAERS Safety Report 8771508 (Version 2)
Quarter: 2014Q2

REPORT INFORMATION
  Report Type: Spontaneous
  Country: US (occurrence: US)
  Receive Date: 20120905
  Receipt Date: 20140602
  Transmission Date: 20141212
  Serious: Yes (Hospitalization, Other)
  Sender: FDA-Public Use
  Company Number: US-WATSON-2012-15254

PATIENT
  Age: 23 Month
  Sex: Male

DRUGS (1)
  1. METHYLPHENIDATE HYDROCHLORIDE (WATSON LABORATORIES) [Suspect]
     Indication: ACCIDENTAL EXPOSURE TO PRODUCT BY CHILD
     Dosage: UNK
     Route: 048

REACTIONS (7)
  - Dyskinesia [Recovered/Resolved]
  - Torticollis [Recovered/Resolved]
  - Dystonia [Recovered/Resolved]
  - Agitation [Recovered/Resolved]
  - Dysarthria [Recovered/Resolved]
  - Psychomotor hyperactivity [Recovered/Resolved]
  - Accidental exposure to product by child [Recovered/Resolved]
